FAERS Safety Report 11676295 (Version 1)
Quarter: 2015Q4

REPORT INFORMATION
  Report Type: Other
  Country: GB (occurrence: GB)
  Receive Date: 20151028
  Receipt Date: 20151028
  Transmission Date: 20160304
  Serious: Yes (Other)
  Sender: FDA-Public Use
  Company Number: GB-CIPLA LTD.-2015GB08159

PATIENT

DRUGS (3)
  1. CARBOPLATIN. [Suspect]
     Active Substance: CARBOPLATIN
     Indication: LUNG ADENOCARCINOMA
     Dosage: 580 MG, 1CYCLICAL
     Route: 065
  2. CISPLATIN. [Suspect]
     Active Substance: CISPLATIN
     Indication: LUNG ADENOCARCINOMA
     Dosage: 150 MG, 1 CYCLICAL
     Route: 065
     Dates: start: 20130715
  3. ALIMTA [Suspect]
     Active Substance: PEMETREXED DISODIUM
     Indication: LUNG ADENOCARCINOMA
     Dosage: 1000 MG, 1 CYCLICAL
     Route: 065
     Dates: start: 20130715

REACTIONS (4)
  - Malignant neoplasm progression [Unknown]
  - Tinnitus [Unknown]
  - Off label use [Unknown]
  - Lymphadenopathy mediastinal [Unknown]
